FAERS Safety Report 9762728 (Version 1)
Quarter: 2013Q4

REPORT INFORMATION
  Report Type: Spontaneous
  Country: US (occurrence: US)
  Receive Date: 20131216
  Receipt Date: 20131216
  Transmission Date: 20140711
  Serious: Yes (Hospitalization)
  Sender: FDA-Public Use
  Company Number: US-B.I. PHARMACEUTICALS,INC./RIDGEFIELD-2013-BI-41331BP

PATIENT
  Age: 78 Year
  Sex: Female
  Weight: 54 kg

DRUGS (3)
  1. COMBIVENT [Suspect]
     Indication: EMPHYSEMA
     Dosage: STRENGTH: 18 MCG / 103 MCG; DAILY DOSE: 108 MCG/600 MCG
     Route: 055
  2. ADVAIR [Concomitant]
     Indication: EMPHYSEMA
     Route: 055
  3. XANAX [Concomitant]
     Indication: ANXIETY
     Route: 048

REACTIONS (1)
  - Dyspnoea [Recovered/Resolved]
